FAERS Safety Report 5142768-5 (Version None)
Quarter: 2006Q4

REPORT INFORMATION
  Report Type: 
  Country: None (occurrence: None)
  Receive Date: 20061027
  Receipt Date: 20061009
  Transmission Date: 20070319
  Serious: Yes (Hospitalization)
  Sender: FDA-Public Use
  Company Number: US200607002718

PATIENT
  Age: 36 Year
  Sex: Male
  Weight: 84.8 kg

DRUGS (3)
  1. ZYPREXA [Suspect]
     Dosage: 25 MG
     Dates: end: 20040101
  2. DEPAKOTE [Concomitant]
  3. BUPROPION HCL [Concomitant]

REACTIONS (7)
  - BLOOD CHOLESTEROL ABNORMAL [None]
  - CARDIAC DISORDER [None]
  - DIABETES MELLITUS [None]
  - HYPERINSULINISM [None]
  - METABOLIC DISORDER [None]
  - PRESCRIBED OVERDOSE [None]
  - VISION BLURRED [None]
